FAERS Safety Report 17934044 (Version 2)
Quarter: 2025Q3

REPORT INFORMATION
  Report Type: Spontaneous
  Country: EU (occurrence: EU)
  Receive Date: 20200624
  Receipt Date: 20250704
  Transmission Date: 20251020
  Serious: Yes (Disabling, Other)
  Sender: AUROBINDO
  Company Number: EU-ZENTIVA-2020-ZT-011833

PATIENT
  Age: 12 Year
  Sex: Male

DRUGS (3)
  1. ARIPIPRAZOLE [Suspect]
     Active Substance: ARIPIPRAZOLE
     Indication: Emotional disorder of childhood
     Dosage: 2.5 MILLIGRAM, ONCE A DAY
     Route: 065
  2. ARIPIPRAZOLE [Suspect]
     Active Substance: ARIPIPRAZOLE
     Dosage: 1.5 MILLIGRAM, ONCE A DAY
     Route: 065
  3. LAMOTRIGINE [Concomitant]
     Active Substance: LAMOTRIGINE
     Indication: Emotional disorder of childhood
     Dosage: 100 MILLIGRAM, ONCE A DAY (TITRATED UP TO 100MG/D)
     Route: 065

REACTIONS (4)
  - Disease recurrence [Recovered/Resolved]
  - Product administration interrupted [Recovered/Resolved]
  - Therapeutic product effective for unapproved indication [Recovered/Resolved]
  - Off label use [Recovered/Resolved]
